FAERS Safety Report 5244772-5 (Version None)
Quarter: 2007Q1

REPORT INFORMATION
  Report Type: 
  Country: None (occurrence: None)
  Receive Date: 20070216
  Receipt Date: 20070130
  Transmission Date: 20070707
  Serious: Yes (Hospitalization, Other)
  Sender: FDA-Public Use
  Company Number: PHMT2007CA00471

PATIENT
  Sex: Female

DRUGS (6)
  1. VISUDYNE [Suspect]
     Indication: MACULAR DEGENERATION
     Dates: start: 20070104, end: 20070104
  2. GLYBURIDE [Concomitant]
  3. ASPIRIN [Concomitant]
  4. FUROSEMIDE [Concomitant]
  5. METFORMIN HCL [Concomitant]
  6. SLOW-K [Concomitant]

REACTIONS (5)
  - DEHYDRATION [None]
  - HYPOTENSION [None]
  - ORAL INTAKE REDUCED [None]
  - PULSE ABSENT [None]
  - SYNCOPE VASOVAGAL [None]
